FAERS Safety Report 20190421 (Version 2)
Quarter: 2021Q4

REPORT INFORMATION
  Report Type: Spontaneous
  Country: AR (occurrence: AR)
  Receive Date: 20211215
  Receipt Date: 20211229
  Transmission Date: 20220303
  Serious: Yes (Other)
  Sender: FDA-Public Use
  Company Number: AR-PFIZER INC-202101739777

PATIENT
  Age: 49 Year
  Sex: Female

DRUGS (3)
  1. ENBREL [Suspect]
     Active Substance: ETANERCEPT
     Indication: Rheumatoid arthritis
     Dosage: 50 MG, EVERY 15 DAYS
     Route: 065
     Dates: start: 20070827
  2. ENBREL [Suspect]
     Active Substance: ETANERCEPT
     Dosage: 50 MG, WEEKLY
     Route: 065
  3. INVESTIGATIONAL PRODUCT [Suspect]
     Active Substance: INVESTIGATIONAL PRODUCT
     Indication: COVID-19 immunisation
     Dosage: DOSE NUMBER UNKNOWN , SINGLE
     Route: 065

REACTIONS (2)
  - Rheumatoid arthritis [Recovered/Resolved]
  - Off label use [Unknown]

NARRATIVE: CASE EVENT DATE: 20070827
